FAERS Safety Report 5231580-4 (Version None)
Quarter: 2007Q1

REPORT INFORMATION
  Report Type: 
  Country: None (occurrence: None)
  Receive Date: 20070201
  Receipt Date: 20070123
  Transmission Date: 20070707
  Serious: Yes (Other)
  Sender: FDA-Public Use
  Company Number: 2007304625

PATIENT
  Sex: Female

DRUGS (2)
  1. SUDAFED S.A. [Suspect]
     Indication: SINUS DISORDER
     Dosage: 1 TABLET DAILY AT LUNCH (1 IN 1 D), ORAL
     Route: 048
  2. ALLEGRA-D 12 HOUR [Suspect]
     Indication: HYPERSENSITIVITY
     Dosage: 1 DAILY IN EVENING, DOSAGE UNSPECIFIED (1 IN 1 D), ORAL
     Route: 048

REACTIONS (1)
  - ANGLE CLOSURE GLAUCOMA [None]
